FAERS Safety Report 8518589-X (Version None)
Quarter: 2012Q3

REPORT INFORMATION
  Report Type: 
  Country: None (occurrence: None)
  Receive Date: 20120718
  Receipt Date: 20120214
  Transmission Date: 20120928
  Serious: No
  Sender: FDA-Public Use
  Company Number: US-BRISTOL-MYERS SQUIBB COMPANY-13760681

PATIENT
  Age: 59 Year
  Sex: Male
  Weight: 63 kg

DRUGS (3)
  1. FLOMAX [Concomitant]
     Indication: PROSTATIC DISORDER
  2. COUMADIN [Suspect]
     Indication: ATRIAL FIBRILLATION
     Dosage: INITIAL DOSE:4MG
  3. DIGOXIN [Concomitant]
     Indication: ATRIAL FIBRILLATION

REACTIONS (2)
  - FLATULENCE [None]
  - INTERNATIONAL NORMALISED RATIO DECREASED [None]
